FAERS Safety Report 16218842 (Version 1)
Quarter: 2019Q2

REPORT INFORMATION
  Report Type: Report from Study
  Country: US (occurrence: US)
  Receive Date: 20190419
  Receipt Date: 20190419
  Transmission Date: 20190711
  Serious: Yes (Death, Hospitalization)
  Sender: FDA-Public Use
  Company Number: PHEH2019US016718

PATIENT
  Sex: Female
  Weight: 54.88 kg

DRUGS (1)
  1. PROMACTA [Suspect]
     Active Substance: ELTROMBOPAG OLAMINE
     Indication: PLATELET COUNT INCREASED
     Dosage: UNK
     Route: 048
     Dates: start: 20170507, end: 20190222

REACTIONS (1)
  - Metastatic neoplasm [Fatal]
